FAERS Safety Report 5145428-X (Version None)
Quarter: 2006Q4

REPORT INFORMATION
  Report Type: 
  Country: None (occurrence: None)
  Receive Date: 20061101
  Receipt Date: 20061013
  Transmission Date: 20070319
  Serious: Yes (Hospitalization)
  Sender: FDA-Public Use
  Company Number: FR200610002294

PATIENT
  Age: 81 Year
  Sex: Female

DRUGS (8)
  1. FORTEO [Suspect]
     Indication: OSTEOPOROSIS
     Dosage: SEE IMAGE
     Route: 058
     Dates: start: 20051114, end: 20060927
  2. FORTEO [Suspect]
     Indication: OSTEOPOROSIS
     Dosage: SEE IMAGE
     Route: 058
     Dates: start: 20061004
  3. FORTEO [Concomitant]
  4. CACIT D3 (CALCIUM CARBONATE, COLECALCIFEROL) [Concomitant]
  5. TANAKAN (GINKGO BILOBA EXTRACT) [Suspect]
  6. LIPANTHYL (FENOFIBRATE) [Concomitant]
  7. ACETAMINOPHEN W/ PROPOXYPHENE HCL [Concomitant]
  8. DAFLON       (DIOSMIN) [Concomitant]

REACTIONS (2)
  - BLADDER PROLAPSE [None]
  - HYSTERECTOMY [None]
